FAERS Safety Report 6392035-7 (Version None)
Quarter: 2009Q4

REPORT INFORMATION
  Report Type: 
  Country: None (occurrence: None)
  Receive Date: 20091007
  Receipt Date: 20090929
  Transmission Date: 20100525
  Serious: Yes (Other)
  Sender: FDA-Public Use
  Company Number: PL-ROCHE-659721

PATIENT
  Age: 27 Year
  Sex: Female

DRUGS (6)
  1. CAPECITABINE [Suspect]
     Dosage: SCHEDULED FOR 14 DAYS, EVERY 21 DAYS
     Route: 065
     Dates: start: 20070119
  2. CAPECITABINE [Suspect]
     Dosage: DOSE REDUCED BY 25 %.
     Route: 065
     Dates: end: 20080801
  3. TRASTUZUMAB [Suspect]
     Dosage: LOADING DOSE
     Route: 065
     Dates: start: 20060101
  4. TRASTUZUMAB [Suspect]
     Route: 065
     Dates: end: 20060915
  5. PACLITAXEL [Suspect]
     Dosage: 6 CYCLES IN TOTAL
     Route: 065
     Dates: start: 20060210, end: 20060602
  6. LAPATINIB [Suspect]
     Route: 065
     Dates: start: 20060101, end: 20061201

REACTIONS (6)
  - GRANULOCYTOPENIA [None]
  - MALIGNANT NEOPLASM PROGRESSION [None]
  - METABOLIC DISORDER [None]
  - PALMAR-PLANTAR ERYTHRODYSAESTHESIA SYNDROME [None]
  - SALPINGO-OOPHORITIS [None]
  - TREATMENT FAILURE [None]
